FAERS Safety Report 9365965 (Version 1)
Quarter: 2013Q2

REPORT INFORMATION
  Report Type: Spontaneous
  Country: US (occurrence: US)
  Receive Date: 20130625
  Receipt Date: 20130625
  Transmission Date: 20140414
  Serious: No
  Sender: FDA-Public Use
  Company Number: US-MYLANLABS-2012S1018104

PATIENT
  Age: 21 Year
  Sex: Male
  Weight: 77.11 kg

DRUGS (5)
  1. PRAZOSIN HYDROCHLORIDE CAPSULES, USP [Suspect]
     Indication: ANXIETY
     Route: 048
     Dates: start: 201112
  2. PRAZOSIN HYDROCHLORIDE CAPSULES, USP [Suspect]
     Indication: OFF LABEL USE
     Route: 048
     Dates: start: 201112
  3. BUSPAR [Concomitant]
     Indication: ANXIETY
     Route: 048
     Dates: start: 201207
  4. CYMBALTA [Concomitant]
     Indication: ANXIETY
     Route: 048
  5. SEROQUEL [Concomitant]
     Indication: ANXIETY
     Route: 048

REACTIONS (1)
  - Dermal cyst [Not Recovered/Not Resolved]
